FAERS Safety Report 23048471 (Version 1)
Quarter: 2023Q4

REPORT INFORMATION
  Report Type: Spontaneous
  Country: IT (occurrence: IT)
  Receive Date: 20231010
  Receipt Date: 20231010
  Transmission Date: 20240110
  Serious: Yes (Other)
  Sender: FDA-Public Use
  Company Number: None

PATIENT
  Age: 70 Year
  Sex: Female
  Weight: 80 kg

DRUGS (6)
  1. ALLOPURINOL [Suspect]
     Active Substance: ALLOPURINOL
     Indication: Product used for unknown indication
  2. FUROSEMIDE [Concomitant]
     Active Substance: FUROSEMIDE
     Dosage: FOR YEARS
  3. FOLIC ACID [Concomitant]
     Active Substance: FOLIC ACID
     Dosage: FROM 1 MONTH
  4. METFORMIN [Concomitant]
     Active Substance: METFORMIN HYDROCHLORIDE
     Dosage: FOR YEARS
  5. VALSARTAN [Concomitant]
     Active Substance: VALSARTAN
     Dosage: FOR YEARS
  6. ASPIRIN [Concomitant]
     Active Substance: ASPIRIN
     Dosage: FOR YEARS

REACTIONS (1)
  - Dermatosis [Recovering/Resolving]

NARRATIVE: CASE EVENT DATE: 20230817
